FAERS Safety Report 9638649 (Version 2)
Quarter: 2013Q4

REPORT INFORMATION
  Report Type: Spontaneous
  Country: PL (occurrence: US)
  Receive Date: 20131022
  Receipt Date: 20131101
  Transmission Date: 20140711
  Serious: Yes (Hospitalization, Other)
  Sender: FDA-Public Use
  Company Number: PL-PFIZER INC-2013299711

PATIENT
  Age: 51 Year
  Sex: Female

DRUGS (3)
  1. VENLAFAXINE HCL [Suspect]
     Dosage: UNK
  2. METOPROLOL TARTRATE [Suspect]
     Dosage: UNK
  3. TYLENOL [Suspect]
     Dosage: UNK

REACTIONS (12)
  - Myocardial infarction [Unknown]
  - Overdose [Unknown]
  - Toxicity to various agents [Unknown]
  - Depressed level of consciousness [Recovering/Resolving]
  - Hypotension [Recovering/Resolving]
  - Tachycardia [Recovering/Resolving]
  - Metabolic acidosis [Unknown]
  - Respiratory acidosis [Unknown]
  - Drug level increased [Recovering/Resolving]
  - Blood creatine phosphokinase increased [Recovering/Resolving]
  - Troponin increased [Recovering/Resolving]
  - White blood cell count increased [Recovering/Resolving]
